FAERS Safety Report 7592236-6 (Version None)
Quarter: 2011Q3

REPORT INFORMATION
  Report Type: 
  Country: None (occurrence: None)
  Receive Date: 20110706
  Receipt Date: 20110623
  Transmission Date: 20111222
  Serious: Yes (Other)
  Sender: FDA-Public Use
  Company Number: US-ELI_LILLY_AND_COMPANY-US201012005738

PATIENT
  Sex: Male

DRUGS (18)
  1. FORTEO [Suspect]
     Dosage: 20 UG, QD
  2. TENORMIN [Concomitant]
     Dosage: 100 MG, QD
  3. NORVASC [Concomitant]
     Dosage: 10 MG, QD
  4. IMDUR [Concomitant]
     Dosage: 60 MG, QD
  5. VITAMIN E [Concomitant]
     Dosage: 800 IU, QD
  6. ALTACE [Concomitant]
     Dosage: 10 MG, QD
  7. PANTOPRAZOLE SODIUM [Concomitant]
     Dosage: 40 MG, QD
  8. PLAVIX [Concomitant]
     Dosage: 75 MG, QD
  9. FORTEO [Suspect]
     Indication: OSTEOPOROSIS
     Dosage: 20 UG, DAILY (1/D)
     Dates: start: 20101101
  10. CRESTOR [Concomitant]
     Dosage: 20 MG, QD
  11. CALCIUM CARBONATE [Concomitant]
     Dosage: 600 IU, QD
  12. SPIRIVA [Concomitant]
     Dosage: 18 UG, QD
  13. VITAMIN D [Concomitant]
     Dosage: UNK, QD
  14. ASPIRIN [Concomitant]
     Dosage: 325 MG, QD
  15. VENTOLIN HFA [Concomitant]
     Dosage: UNK, PRN
  16. DICYCLOMINE [Concomitant]
     Dosage: 20 UG, QD
  17. FORTEO [Suspect]
     Dosage: 20 UG, QD
  18. VITAMIN B-12 [Concomitant]
     Dosage: 1 DF, MONTHLY (1/M)

REACTIONS (4)
  - CARDIAC DISORDER [None]
  - MUSCLE SPASMS [None]
  - CORONARY ARTERY OCCLUSION [None]
  - CONSTIPATION [None]
